FAERS Safety Report 10343912 (Version 2)
Quarter: 2014Q3

REPORT INFORMATION
  Report Type: Spontaneous
  Country: TR (occurrence: TR)
  Receive Date: 20140727
  Receipt Date: 20140727
  Transmission Date: 20150326
  Serious: Yes (Other)
  Sender: FDA-Public Use
  Company Number: PHHY2014TR082998

PATIENT
  Age: 10 Year
  Sex: Male
  Weight: 40 kg

DRUGS (5)
  1. PAROXETINE [Interacting]
     Active Substance: PAROXETINE\PAROXETINE HYDROCHLORIDE
     Indication: ATTENTION DEFICIT/HYPERACTIVITY DISORDER
     Dosage: 10 MG, PER DAY
  2. METHYLPHENIDATE [Suspect]
     Active Substance: METHYLPHENIDATE
     Indication: ATTENTION DEFICIT/HYPERACTIVITY DISORDER
     Dosage: 18 MG, PER DAY
     Route: 048
  3. METHYLPHENIDATE [Interacting]
     Active Substance: METHYLPHENIDATE
     Dosage: 36 MG, PER DAY
     Route: 048
  4. PAROXETINE [Interacting]
     Active Substance: PAROXETINE\PAROXETINE HYDROCHLORIDE
     Dosage: 20 MG, PER DAY
  5. METHYLPHENIDATE [Interacting]
     Active Substance: METHYLPHENIDATE
     Dosage: 54 MG, PER DAY
     Route: 048

REACTIONS (4)
  - Drug interaction [Unknown]
  - Mental disorder [Unknown]
  - Disturbance in social behaviour [Unknown]
  - Gynaecomastia [Not Recovered/Not Resolved]
